FAERS Safety Report 14861062 (Version 1)
Quarter: 2018Q2

REPORT INFORMATION
  Report Type: Other
  Country: FR (occurrence: FR)
  Receive Date: 20180508
  Receipt Date: 20180508
  Transmission Date: 20180711
  Serious: Yes (Life-Threatening, Hospitalization)
  Sender: FDA-Public Use
  Company Number: FR-GLENMARK PHARMACEUTICALS-2018GMK035060

PATIENT

DRUGS (4)
  1. NEBIVOLOL. [Suspect]
     Active Substance: NEBIVOLOL
     Indication: SUICIDE ATTEMPT
     Dosage: UNK
     Route: 048
     Dates: start: 20180210, end: 20180210
  2. LEXOMIL ROCHE COMPRIME BAGUETTE, COMPRIM? QUADRIS?CABLE [Suspect]
     Active Substance: BROMAZEPAM
     Indication: SUICIDE ATTEMPT
     Dosage: 90 MG, UNK ; FORMULATION: TABLET BAGUETTE, QUADRISECABLE TABLET
     Route: 048
     Dates: start: 20180210, end: 20180210
  3. TRIATEC 2,5 MG, COMPRIM? S?CABLE (RAMIPRIL) [Suspect]
     Active Substance: RAMIPRIL
     Indication: SUICIDE ATTEMPT
     Dosage: 50 MG, UNK; FORMULATION: TABLET BREAKABLE
     Route: 048
     Dates: start: 20180210, end: 20180210
  4. IVABRADINE [Suspect]
     Active Substance: IVABRADINE
     Indication: SUICIDE ATTEMPT
     Dosage: 150 MG, UNK
     Route: 048
     Dates: start: 20180210, end: 20180210

REACTIONS (5)
  - Haemodynamic instability [Recovered/Resolved]
  - Psychomotor hyperactivity [Recovered/Resolved]
  - Somnolence [Recovered/Resolved]
  - Sinus bradycardia [Recovered/Resolved]
  - Electrocardiogram QT prolonged [Recovered/Resolved]

NARRATIVE: CASE EVENT DATE: 20180210
